FAERS Safety Report 5318226-1 (Version None)
Quarter: 2007Q2

REPORT INFORMATION
  Report Type: 
  Country: None (occurrence: None)
  Receive Date: 20070507
  Receipt Date: 20070423
  Transmission Date: 20071010
  Serious: Yes (Other)
  Sender: FDA-Public Use
  Company Number: GB-AMGEN-US221060

PATIENT
  Sex: Female
  Weight: 51.2 kg

DRUGS (1)
  1. ETANERCEPT [Suspect]
     Indication: ANKYLOSING SPONDYLITIS
     Dosage: 50MG WEEKLY FREQUENCY UNKNOWN
     Route: 058
     Dates: start: 20061121

REACTIONS (1)
  - POLYCYSTIC OVARIES [None]
